FAERS Safety Report 21976963 (Version 1)
Quarter: 2023Q1

REPORT INFORMATION
  Report Type: Spontaneous
  Country: GB (occurrence: GB)
  Receive Date: 20230210
  Receipt Date: 20230210
  Transmission Date: 20230417
  Serious: Yes (Other)
  Sender: FDA-Public Use
  Company Number: GB-ADVANZ PHARMA-202302000789

PATIENT

DRUGS (2)
  1. TRANYLCYPROMINE [Suspect]
     Active Substance: TRANYLCYPROMINE
     Dosage: 30 MG, QD (PARNATE)
  2. TRANYLCYPROMINE [Suspect]
     Active Substance: TRANYLCYPROMINE
     Dosage: UNK, LEFTOVER TREATMENT

REACTIONS (4)
  - Heart rate increased [Recovered/Resolved]
  - Product substitution issue [Unknown]
  - Product availability issue [Unknown]
  - Palpitations [Recovered/Resolved]
